FAERS Safety Report 5747646-6 (Version None)
Quarter: 2008Q2

REPORT INFORMATION
  Report Type: 
  Country: None (occurrence: None)
  Receive Date: 20080523
  Receipt Date: 20080515
  Transmission Date: 20081010
  Serious: Yes (Hospitalization)
  Sender: FDA-Public Use
  Company Number: US-BAYER-200713808BCC

PATIENT
  Age: 44 Year
  Sex: Female
  Weight: 100 kg

DRUGS (6)
  1. ALEVE [Suspect]
     Indication: MIGRAINE
     Dosage: AS USED: 1100 MG  UNIT DOSE: 220 MG
     Route: 048
     Dates: start: 20050226, end: 20050226
  2. HORMONE REPLACEMENT THERAPY [Concomitant]
  3. BCP [Concomitant]
  4. FORTAMET [Concomitant]
  5. BIRTH CONTROL PILLS [Concomitant]
  6. IBUPROFEN [Concomitant]

REACTIONS (11)
  - CHEST DISCOMFORT [None]
  - DYSPNOEA [None]
  - ERYTHEMA [None]
  - FLUSHING [None]
  - GINGIVAL SWELLING [None]
  - HYPERSENSITIVITY [None]
  - LIP SWELLING [None]
  - OEDEMA MOUTH [None]
  - OEDEMA PERIPHERAL [None]
  - PRURITUS [None]
  - SWOLLEN TONGUE [None]
